FAERS Safety Report 9078987 (Version 1)
Quarter: 2013Q1

REPORT INFORMATION
  Report Type: Report from Study
  Country: US (occurrence: US)
  Receive Date: 20130130
  Receipt Date: 20130130
  Transmission Date: 20140127
  Serious: Yes (Hospitalization)
  Sender: FDA-Public Use
  Company Number: US-ABBOTT-12P-163-0944427-00

PATIENT
  Age: 39 Year
  Sex: Male

DRUGS (15)
  1. HUMIRA 40 MG/ 0.8 ML PRE-FILLED SYRINGE [Suspect]
     Indication: CROHN^S DISEASE
     Route: 058
     Dates: start: 20120511, end: 20120511
  2. HUMIRA 40 MG/ 0.8 ML PRE-FILLED SYRINGE [Suspect]
     Route: 058
     Dates: start: 20120525, end: 20120525
  3. HUMIRA 40 MG/ 0.8 ML PRE-FILLED SYRINGE [Suspect]
     Route: 058
     Dates: start: 20120529, end: 20120708
  4. PREDNISONE [Concomitant]
     Indication: CROHN^S DISEASE
     Dosage: 20 MG DAILY
     Route: 048
  5. PREDNISONE [Concomitant]
     Dosage: 60 MG DAILY
     Dates: start: 20120713
  6. CROHN^S MAINTENANCE MEDICATION [Concomitant]
     Indication: CROHN^S DISEASE
     Dosage: 3 TABLETS DAILY
     Route: 048
  7. LEVOTHYROXINE [Concomitant]
     Indication: HYPOTHYROIDISM
     Dosage: 20 MG DAILY
     Route: 048
  8. LEVOTHYROXINE [Concomitant]
     Indication: LIVER DISORDER
  9. TESTOSTERONE [Concomitant]
     Indication: BLOOD TESTOSTERONE DECREASED
  10. TESTOSTERONE [Concomitant]
     Indication: BLOOD TESTOSTERONE DECREASED
  11. CHOLESTYRAMINE RESIN [Concomitant]
     Indication: HEPATOBILIARY DISEASE
     Dosage: AM AND PM MIXED IN A LIQUID BEVERAGE
     Route: 048
  12. ALLEGRA [Concomitant]
     Indication: URTICARIA
     Dosage: DAILY
     Route: 048
  13. ALLEGRA [Concomitant]
     Indication: URTICARIA
  14. ZYRTEC [Concomitant]
     Indication: LIVER DISORDER
     Dosage: AT NIGHT
     Route: 048
  15. ZYRTEC [Concomitant]
     Indication: LIVER DISORDER

REACTIONS (4)
  - Crohn^s disease [Recovering/Resolving]
  - Migraine [Unknown]
  - Migraine [Recovered/Resolved]
  - Migraine [Recovered/Resolved]
